FAERS Safety Report 8435354 (Version 2)
Quarter: 2014Q1

REPORT INFORMATION
  Report Type: Spontaneous
  Country: US (occurrence: US)
  Receive Date: 20120301
  Receipt Date: 20140127
  Transmission Date: 20141002
  Serious: Yes (Hospitalization)
  Sender: FDA-Public Use
  Company Number: US-GLAXOSMITHKLINE-A0932362A

PATIENT
  Sex: Male

DRUGS (1)
  1. AVANDIA [Suspect]
     Indication: DIABETES MELLITUS
     Dosage: 4MG PER DAY
     Route: 048
     Dates: start: 200406, end: 200410

REACTIONS (5)
  - Chest pain [Recovering/Resolving]
  - Coronary arterial stent insertion [Unknown]
  - Stent placement [Unknown]
  - Aneurysm [Unknown]
  - Ill-defined disorder [Unknown]
